FAERS Safety Report 5744074-4 (Version None)
Quarter: 2008Q2

REPORT INFORMATION
  Report Type: 
  Country: None (occurrence: None)
  Receive Date: 20080516
  Receipt Date: 20080516
  Transmission Date: 20081010
  Serious: Yes (Hospitalization, Other)
  Sender: FDA-Public Use
  Company Number: None

PATIENT
  Age: 51 Year
  Sex: Male
  Weight: 91.8534 kg

DRUGS (6)
  1. FLUOROURACIL [Suspect]
     Indication: HEAD AND NECK CANCER
     Dosage: 6510 MG
     Dates: start: 20080511, end: 20080513
  2. TAXOTERE [Suspect]
     Indication: HEAD AND NECK CANCER
     Dosage: 54 MG
     Dates: start: 20080512
  3. LACTULOSE [Concomitant]
  4. PROCHLOROPERAZINE [Concomitant]
  5. ONDANSETRON [Concomitant]
  6. FLUCONAZOLE [Concomitant]

REACTIONS (3)
  - DRUG TOXICITY [None]
  - INCORRECT DRUG ADMINISTRATION RATE [None]
  - MUCOSAL INFLAMMATION [None]
